FAERS Safety Report 14951987 (Version 1)
Quarter: 2018Q2

REPORT INFORMATION
  Report Type: Report from Study
  Country: US (occurrence: US)
  Receive Date: 20180530
  Receipt Date: 20180530
  Transmission Date: 20180711
  Serious: Yes (Hospitalization, Other)
  Sender: FDA-Public Use
  Company Number: US-GILEAD-2018-0337271

PATIENT
  Age: 59 Year
  Sex: Male
  Weight: 117 kg

DRUGS (16)
  1. WARFARIN [Concomitant]
     Active Substance: WARFARIN
  2. LASIX [Concomitant]
     Active Substance: FUROSEMIDE
  3. METOPROLOL. [Concomitant]
     Active Substance: METOPROLOL
  4. SIMVASTATIN. [Concomitant]
     Active Substance: SIMVASTATIN
  5. DOGOXINE [Concomitant]
  6. PROBENECID. [Concomitant]
     Active Substance: PROBENECID
  7. MULTI VIT [Concomitant]
  8. CLONAZEPAM. [Concomitant]
     Active Substance: CLONAZEPAM
  9. COLACE [Concomitant]
     Active Substance: DOCUSATE SODIUM
  10. LOSARTAN. [Concomitant]
     Active Substance: LOSARTAN
  11. CYMBALTA [Concomitant]
     Active Substance: DULOXETINE HYDROCHLORIDE
  12. HYDROCODONE [Concomitant]
     Active Substance: HYDROCODONE
  13. POTASSIUM [Concomitant]
     Active Substance: POTASSIUM
  14. AMBRISENTAN [Suspect]
     Active Substance: AMBRISENTAN
     Indication: PULMONARY HYPERTENSION
     Dosage: 10 MG, QD
     Route: 065
     Dates: start: 201603
  15. SOTALOL. [Concomitant]
     Active Substance: SOTALOL
  16. OXYCODONE [Concomitant]
     Active Substance: OXYCODONE

REACTIONS (5)
  - Chronic obstructive pulmonary disease [Unknown]
  - Weight increased [Unknown]
  - Oedema peripheral [Unknown]
  - Cardiac failure [Unknown]
  - Fluid retention [Recovering/Resolving]
